FAERS Safety Report 25370733 (Version 1)
Quarter: 2025Q2

REPORT INFORMATION
  Report Type: Spontaneous
  Country: CZ (occurrence: CZ)
  Receive Date: 20250528
  Receipt Date: 20250528
  Transmission Date: 20250716
  Serious: Yes (Other)
  Sender: ABBVIE
  Company Number: CZ-JNJFOC-20250527525

PATIENT
  Sex: Male

DRUGS (2)
  1. IMBRUVICA [Suspect]
     Active Substance: IBRUTINIB
     Indication: Chronic lymphocytic leukaemia
     Route: 048
     Dates: start: 20240717
  2. VENETOCLAX [Suspect]
     Active Substance: VENETOCLAX
     Indication: Chronic lymphocytic leukaemia
     Route: 048
     Dates: start: 20241015

REACTIONS (6)
  - Hyponatraemia [Unknown]
  - Neutropenia [Unknown]
  - Gastrointestinal infection [Unknown]
  - Cardiac fibrillation [Unknown]
  - Thrombocytopenia [Unknown]
  - Respiratory tract infection [Unknown]
